FAERS Safety Report 10483642 (Version 1)
Quarter: 2014Q3

REPORT INFORMATION
  Report Type: Spontaneous
  Country: BR (occurrence: BR)
  Receive Date: 20140930
  Receipt Date: 20140930
  Transmission Date: 20150326
  Serious: Yes (Other)
  Sender: FDA-Public Use
  Company Number: BR-TEVA-512189ISR

PATIENT
  Age: 82 Year
  Sex: Female

DRUGS (5)
  1. DONILA [Interacting]
     Active Substance: DONEPEZIL HYDROCHLORIDE
     Indication: DEMENTIA ALZHEIMER^S TYPE
     Dosage: 5 MILLIGRAM DAILY;
     Route: 048
     Dates: start: 20140904, end: 20140918
  2. CARBAMAZEPINE. [Suspect]
     Active Substance: CARBAMAZEPINE
     Indication: ANXIETY
     Dosage: 100 MILLIGRAM DAILY;
     Route: 048
     Dates: start: 201405
  3. NORTRIPTILINE [Concomitant]
     Indication: ANXIETY
     Dosage: 25 MILLIGRAM DAILY;
     Route: 048
     Dates: start: 20140912
  4. PLASIL [Concomitant]
     Active Substance: METOCLOPRAMIDE HYDROCHLORIDE
     Indication: VOMITING
     Dosage: 1 TABLET DAILY;
     Route: 048
     Dates: start: 20140904
  5. RIVOTRIL [Concomitant]
     Active Substance: CLONAZEPAM
     Indication: AGITATION
     Dosage: 2 MILLIGRAM DAILY;
     Route: 048
     Dates: start: 201405

REACTIONS (3)
  - Drug interaction [Unknown]
  - Off label use [Unknown]
  - Convulsion [Recovered/Resolved]

NARRATIVE: CASE EVENT DATE: 201405
